FAERS Safety Report 7301245-3 (Version None)
Quarter: 2011Q1

REPORT INFORMATION
  Report Type: 
  Country: None (occurrence: None)
  Receive Date: 20110218
  Receipt Date: 20110216
  Transmission Date: 20110831
  Serious: Yes (Other)
  Sender: FDA-Public Use
  Company Number: SE-PFIZER INC-2011034988

PATIENT
  Sex: Female

DRUGS (3)
  1. PREDNISOLONE [Suspect]
     Dosage: 5 MG, DAILY
  2. PREDNISOLONE [Suspect]
     Indication: POLYMYALGIA RHEUMATICA
     Dosage: 25 MG, UNK
  3. DIAZEPAM [Concomitant]
     Dosage: UNK

REACTIONS (2)
  - JOINT SPRAIN [None]
  - PULMONARY THROMBOSIS [None]
